FAERS Safety Report 19321944 (Version 1)
Quarter: 2021Q2

REPORT INFORMATION
  Report Type: Spontaneous
  Country: US (occurrence: US)
  Receive Date: 20210528
  Receipt Date: 20210528
  Transmission Date: 20210717
  Serious: Yes (Other)
  Sender: FDA-Public Use
  Company Number: US-DRREDDYS-USA/USA/21/0135790

PATIENT
  Age: 68 Year
  Sex: Male

DRUGS (1)
  1. PRAVASTATIN SODIUM. [Suspect]
     Active Substance: PRAVASTATIN SODIUM
     Indication: PRODUCT USED FOR UNKNOWN INDICATION
     Route: 065
     Dates: end: 20210325

REACTIONS (3)
  - Blood cholesterol abnormal [Unknown]
  - Cataract [Unknown]
  - Peripheral swelling [Unknown]
